FAERS Safety Report 6036525-5 (Version None)
Quarter: 2009Q1

REPORT INFORMATION
  Report Type: 
  Country: None (occurrence: None)
  Receive Date: 20090114
  Receipt Date: 20090109
  Transmission Date: 20090719
  Serious: Yes (Life-Threatening, Hospitalization)
  Sender: FDA-Public Use
  Company Number: AU-ASTRAZENECA-2009AC00329

PATIENT
  Age: 27 Year
  Sex: Male

DRUGS (10)
  1. QUETIAPINE FUMARATE [Suspect]
     Dosage: 17 G
     Route: 048
  2. ADRENALINE [Interacting]
     Route: 042
  3. ADRENALINE [Interacting]
     Route: 042
  4. FENTANYL CITRATE [Concomitant]
     Indication: ENDOTRACHEAL INTUBATION
     Dosage: 100 UG
     Route: 042
  5. PROPOFOL [Concomitant]
     Indication: ENDOTRACHEAL INTUBATION
     Dosage: 80 MG
     Route: 042
  6. SUXAMETHONIUM [Concomitant]
     Indication: ENDOTRACHEAL INTUBATION
     Dosage: 100 MG
     Route: 042
  7. MORPHINE [Concomitant]
     Indication: SEDATION
  8. MIDAZOLAM HCL [Concomitant]
     Indication: SEDATION
  9. SODIUM CHLORIDE [Concomitant]
     Route: 042
  10. RINGER'S [Concomitant]
     Dosage: 2000 ML
     Route: 042

REACTIONS (4)
  - DRUG INTERACTION [None]
  - HYPOTENSION [None]
  - OVERDOSE [None]
  - SINUS TACHYCARDIA [None]
